FAERS Safety Report 10581505 (Version 1)
Quarter: 2014Q4

REPORT INFORMATION
  Report Type: Spontaneous
  Country: US (occurrence: None)
  Receive Date: 20141112
  Receipt Date: 20141112
  Transmission Date: 20150529
  Serious: Yes (Life-Threatening, Hospitalization)
  Sender: FDA-Public Use
  Company Number: None

PATIENT
  Age: 53 Year
  Sex: Female
  Weight: 120.2 kg

DRUGS (1)
  1. HUMIRA [Suspect]
     Active Substance: ADALIMUMAB
     Indication: RHEUMATOID ARTHRITIS
     Dosage: 40MG EPIPEN 2 X MONTH, 2 X MONTH, GIVEN INTO/UNDER THE SKIN
     Dates: start: 20131217, end: 20140708

REACTIONS (4)
  - Abscess [None]
  - Sepsis [None]
  - Infection [None]
  - Wound [None]

NARRATIVE: CASE EVENT DATE: 20140706
